FAERS Safety Report 5034230-5 (Version None)
Quarter: 2006Q2

REPORT INFORMATION
  Report Type: 
  Country: None (occurrence: None)
  Receive Date: 20060626
  Receipt Date: 20060619
  Transmission Date: 20061013
  Serious: Yes (Other)
  Sender: FDA-Public Use
  Company Number: PHBS2006NZ09181

PATIENT
  Age: 23 Year
  Sex: Female

DRUGS (2)
  1. SALBUTAMOL [Concomitant]
     Route: 065
  2. CLOZARIL [Suspect]
     Dosage: 300 MG, QHS
     Route: 048
     Dates: start: 20060503

REACTIONS (4)
  - ASTHMA [None]
  - EOSINOPHIL COUNT INCREASED [None]
  - EOSINOPHILIA [None]
  - RESPIRATORY TRACT INFECTION [None]
